FAERS Safety Report 8273772-6 (Version None)
Quarter: 2012Q2

REPORT INFORMATION
  Report Type: 
  Country: None (occurrence: None)
  Receive Date: 20120411
  Receipt Date: 20120403
  Transmission Date: 20120825
  Serious: Yes (Hospitalization)
  Sender: FDA-Public Use
  Company Number: IL-SANOFI-AVENTIS-2012SA023636

PATIENT
  Age: 80 Year
  Sex: Male

DRUGS (4)
  1. AMBIEN CR [Suspect]
     Route: 065
  2. BETA BLOCKING AGENTS [Concomitant]
     Indication: HYPERTENSION
  3. CALCIUM CHANNEL BLOCKERS [Concomitant]
     Indication: HYPERTENSION
  4. ACE INHIBITOR NOS [Concomitant]
     Indication: HYPERTENSION

REACTIONS (3)
  - VOMITING [None]
  - HYPONATRAEMIA [None]
  - ABDOMINAL PAIN [None]
